FAERS Safety Report 13296315 (Version 1)
Quarter: 2017Q1

REPORT INFORMATION
  Report Type: Report from Study
  Country: CA (occurrence: CA)
  Receive Date: 20170304
  Receipt Date: 20170304
  Transmission Date: 20170428
  Serious: Yes (Hospitalization)
  Sender: FDA-Public Use
  Company Number: CA-B.I. PHARMACEUTICALS,INC./RIDGEFIELD-2017-BI-011647

PATIENT
  Age: 82 Year
  Sex: Female
  Weight: 45 kg

DRUGS (1)
  1. PRADAXA [Suspect]
     Active Substance: DABIGATRAN ETEXILATE MESYLATE
     Indication: ATRIAL FIBRILLATION
     Route: 065

REACTIONS (2)
  - Fall [Unknown]
  - Subarachnoid haemorrhage [Unknown]

NARRATIVE: CASE EVENT DATE: 20140217
